FAERS Safety Report 8349402-1 (Version None)
Quarter: 2012Q2

REPORT INFORMATION
  Report Type: 
  Country: None (occurrence: None)
  Receive Date: 20120510
  Receipt Date: 20120502
  Transmission Date: 20120825
  Serious: Yes (Death)
  Sender: FDA-Public Use
  Company Number: JP-COVIDIEN/TYCO HEALTHCARE/MALLINCKRODT-T201201536

PATIENT
  Age: 76 Year
  Sex: Female
  Weight: 26 kg

DRUGS (16)
  1. ASPIRIN [Concomitant]
     Dosage: 100 MG, TAB QD
     Route: 048
  2. NICORANDIL [Concomitant]
     Dosage: 5 MG, TAB TID
     Route: 048
  3. DROXIDOPA [Concomitant]
     Indication: DIALYSIS
     Dosage: 200 MG, TAB QD
     Route: 048
  4. AMEZINIUM METILSULFATE [Concomitant]
     Indication: DIALYSIS
     Dosage: 10 MG, TAB QD
     Route: 048
  5. MIDODRINE HYDROCHLORIDE [Concomitant]
     Indication: DIALYSIS
     Dosage: 2 MG, TAB QD
     Route: 048
  6. SODIUM POLYSTYRENE SULFONATE [Concomitant]
     Dosage: UNK
  7. TICLOPIDINE HYDROCHLORIDE [Concomitant]
     Dosage: 100 MG, TAB BID
     Route: 048
  8. CINACALCET HYDROCHLORIDE [Concomitant]
     Dosage: 25 MG, TAB BID
     Route: 048
  9. OPTIRAY 160 [Suspect]
     Indication: COMPUTERISED TOMOGRAM
     Dosage: 95 ML, SINGLE
     Route: 042
     Dates: start: 20120420, end: 20120420
  10. CARVEDILOL [Concomitant]
     Dosage: 2.5 MG, TAB QD
     Route: 048
  11. EMEPRAZOLE MAGNESIUM HYDRATE [Concomitant]
     Dosage: 10 MG, CAP QD
     Route: 048
  12. PRECIPITATED CALCIUM CARBONATE [Concomitant]
     Dosage: 2 T TID
     Route: 048
  13. SENNOSIDE                          /00571901/ [Concomitant]
     Dosage: 24 MG, TAB QD
     Route: 048
  14. VALSARTAN [Concomitant]
     Dosage: 80 MG, TAB QD
     Route: 048
  15. SODIUM POLYSTYRENE SULFONATE [Concomitant]
     Dosage: 3.27 G, TID
     Route: 048
  16. ROSUVASTATIN CALCIUM [Concomitant]
     Dosage: 2.5 MG, TAB QD
     Route: 048

REACTIONS (1)
  - SHOCK [None]
